FAERS Safety Report 6131426-6 (Version None)
Quarter: 2009Q1

REPORT INFORMATION
  Report Type: 
  Country: None (occurrence: None)
  Receive Date: 20090325
  Receipt Date: 20080708
  Transmission Date: 20090719
  Serious: Yes (Other)
  Sender: FDA-Public Use
  Company Number: US-BRISTOL-MYERS SQUIBB COMPANY-14229132

PATIENT
  Age: 66 Year
  Sex: Male

DRUGS (7)
  1. ERBITUX [Suspect]
     Indication: COLON CANCER
     Route: 042
     Dates: start: 20080612, end: 20080612
  2. ERBITUX [Suspect]
     Indication: METASTASES TO LIVER
     Route: 042
     Dates: start: 20080612, end: 20080612
  3. ANZEMET [Concomitant]
     Indication: PREMEDICATION
  4. DECADRON [Concomitant]
     Dosage: 4MG TO TAKE 2TABS PRIOR TO CHEMOTHERAPY.
  5. CAMPTOSAR [Concomitant]
  6. SOLU-MEDROL [Concomitant]
     Indication: PREMEDICATION
  7. BENADRYL [Concomitant]
     Indication: PREMEDICATION

REACTIONS (1)
  - INFUSION RELATED REACTION [None]
